FAERS Safety Report 18527988 (Version 4)
Quarter: 2021Q1

REPORT INFORMATION
  Report Type: Other
  Country: US (occurrence: US)
  Receive Date: 20201120
  Receipt Date: 20210312
  Transmission Date: 20210419
  Serious: Yes (Death, Other)
  Sender: FDA-Public Use
  Company Number: US-ROCHE-2713955

PATIENT

DRUGS (6)
  1. CYCLOPHOSPHAMIDE. [Suspect]
     Active Substance: CYCLOPHOSPHAMIDE
     Indication: LUPUS NEPHRITIS
     Dosage: EVERY 2 WEEKS (+/?3 DAYS) FOR 6 INFUSIONS
     Route: 042
  2. MYCOPHENOLATE MOFETIL. [Suspect]
     Active Substance: MYCOPHENOLATE MOFETIL
     Indication: LUPUS NEPHRITIS
     Route: 065
  3. BELIMUMAB [Suspect]
     Active Substance: BELIMUMAB
     Indication: LUPUS NEPHRITIS
     Route: 042
  4. AZATHIOPRINE. [Suspect]
     Active Substance: AZATHIOPRINE
     Indication: LUPUS NEPHRITIS
     Dosage: TARGET DOSE, 2 MG PER KILOGRAM PER DAY; {/=200 MG PER DAY
     Route: 065
  5. METHYLPREDNISOLONE. [Suspect]
     Active Substance: METHYLPREDNISOLONE
     Indication: LUPUS NEPHRITIS
     Route: 042
  6. PREDNISONE. [Suspect]
     Active Substance: PREDNISONE
     Indication: LUPUS NEPHRITIS
     Route: 048

REACTIONS (21)
  - Completed suicide [Fatal]
  - Pneumonia [Unknown]
  - Herpes zoster [Unknown]
  - Lymphatic disorder [Unknown]
  - Neoplasm malignant [Unknown]
  - Death [Fatal]
  - Infestation [Unknown]
  - Nervous system disorder [Unknown]
  - Blood disorder [Unknown]
  - Mediastinal disorder [Unknown]
  - Opportunistic infection [Unknown]
  - Tuberculosis [Unknown]
  - Sepsis [Unknown]
  - Suicidal ideation [Unknown]
  - Infusion related reaction [Unknown]
  - Depression [Unknown]
  - Infection [Fatal]
  - Ill-defined disorder [Unknown]
  - Respiratory disorder [Unknown]
  - Skin cancer [Unknown]
  - Injury [Unknown]
